FAERS Safety Report 23218232 (Version 2)
Quarter: 2023Q4

REPORT INFORMATION
  Report Type: Spontaneous
  Country: ES (occurrence: ES)
  Receive Date: 20231122
  Receipt Date: 20231129
  Transmission Date: 20240109
  Serious: Yes (Death, Other)
  Sender: FDA-Public Use
  Company Number: None

PATIENT
  Age: 37 Year
  Sex: Female
  Weight: 62 kg

DRUGS (1)
  1. YESCARTA [Suspect]
     Active Substance: AXICABTAGENE CILOLEUCEL
     Indication: B-cell lymphoma
     Dosage: 68 ML, ONCE
     Route: 042
     Dates: start: 20230327, end: 20230327

REACTIONS (11)
  - Cerebral haemorrhage [Fatal]
  - Intracranial pressure increased [Fatal]
  - Neurogenic shock [Fatal]
  - Hydrocephalus [Fatal]
  - Brain oedema [Fatal]
  - Dysarthria [Fatal]
  - Disturbance in attention [Fatal]
  - Anisocoria [Fatal]
  - Somnolence [Fatal]
  - Immune effector cell-associated neurotoxicity syndrome [Fatal]
  - Cytokine release syndrome [Recovered/Resolved]

NARRATIVE: CASE EVENT DATE: 20230328
